FAERS Safety Report 14290399 (Version 1)
Quarter: 2017Q4

REPORT INFORMATION
  Report Type: Spontaneous
  Country: US (occurrence: US)
  Receive Date: 20171215
  Receipt Date: 20171215
  Transmission Date: 20180321
  Serious: No
  Sender: FDA-Public Use
  Company Number: US-GUERBET-US-20170079

PATIENT
  Age: 34 Year
  Sex: Female

DRUGS (2)
  1. OPTIMARK [Suspect]
     Active Substance: GADOVERSETAMIDE
     Route: 042
     Dates: start: 20170505, end: 20170505
  2. OPTIMARK [Suspect]
     Active Substance: GADOVERSETAMIDE
     Indication: NUCLEAR MAGNETIC RESONANCE IMAGING BRAIN
     Route: 042
     Dates: start: 20170505, end: 20170505

REACTIONS (4)
  - Malaise [Recovered/Resolved]
  - Sneezing [Recovered/Resolved]
  - Injection site warmth [Recovered/Resolved]
  - Cough [Recovered/Resolved]

NARRATIVE: CASE EVENT DATE: 20170505
